FAERS Safety Report 6517669-8 (Version None)
Quarter: 2009Q4

REPORT INFORMATION
  Report Type: 
  Country: None (occurrence: None)
  Receive Date: 20091224
  Receipt Date: 20091222
  Transmission Date: 20100525
  Serious: Yes (Death, Hospitalization)
  Sender: FDA-Public Use
  Company Number: PHEH2009US11184

PATIENT
  Sex: Female

DRUGS (8)
  1. GLEEVEC [Suspect]
     Indication: CHRONIC MYELOID LEUKAEMIA
     Dosage: 100 MG, TAKE 3 TABS DAILY
     Route: 048
     Dates: start: 20090909, end: 20091203
  2. LASIX [Concomitant]
  3. LIPITOR [Concomitant]
  4. MIRAPEX [Concomitant]
  5. SYNTHROID [Concomitant]
  6. POTASSIUM [Concomitant]
  7. PERDIEM [Concomitant]
  8. CLEOCIN [Concomitant]

REACTIONS (3)
  - DEATH [None]
  - PNEUMONIA [None]
  - RASH [None]
